FAERS Safety Report 4442544-2 (Version None)
Quarter: 2004Q3

REPORT INFORMATION
  Report Type: 
  Country: None (occurrence: None)
  Receive Date: 20040903
  Receipt Date: 20040728
  Transmission Date: 20050211
  Serious: Yes (Other)
  Sender: FDA-Public Use
  Company Number: 2004UW15956

PATIENT
  Age: 57 Year
  Sex: Female

DRUGS (1)
  1. CRESTOR [Suspect]
     Indication: BLOOD CHOLESTEROL INCREASED
     Dosage: 10 MG DAILY PO
     Route: 048
     Dates: start: 20030101

REACTIONS (6)
  - MUSCULAR WEAKNESS [None]
  - MYALGIA [None]
  - POLLAKIURIA [None]
  - SINUS PAIN [None]
  - TOOTHACHE [None]
  - URINARY INCONTINENCE [None]
